FAERS Safety Report 17800401 (Version 11)
Quarter: 2021Q1

REPORT INFORMATION
  Report Type: Spontaneous
  Country: US (occurrence: US)
  Receive Date: 20200518
  Receipt Date: 20210301
  Transmission Date: 20210419
  Serious: Yes (Hospitalization, Other)
  Sender: FDA-Public Use
  Company Number: NVSC2020US134273

PATIENT
  Sex: Female

DRUGS (6)
  1. TAFINLAR [Suspect]
     Active Substance: DABRAFENIB MESYLATE
     Indication: NEOPLASM MALIGNANT
     Dosage: 150 MG, BID
     Route: 048
     Dates: start: 20200408
  2. MEKINIST [Suspect]
     Active Substance: TRAMETINIB DIMETHYL SULFOXIDE
     Dosage: 2 MG, QD
     Route: 048
     Dates: start: 20200410
  3. MEKINIST [Suspect]
     Active Substance: TRAMETINIB DIMETHYL SULFOXIDE
     Dosage: 2 MG, QD
     Route: 048
     Dates: start: 20200416
  4. TAFINLAR [Suspect]
     Active Substance: DABRAFENIB MESYLATE
     Dosage: 150 MG, BID
     Route: 048
     Dates: start: 20200410
  5. TAFINLAR [Suspect]
     Active Substance: DABRAFENIB MESYLATE
     Dosage: 150 MG, Q12H
     Route: 048
     Dates: start: 20200416
  6. MEKINIST [Suspect]
     Active Substance: TRAMETINIB DIMETHYL SULFOXIDE
     Indication: NEOPLASM MALIGNANT
     Dosage: 2 MG, QD
     Route: 048
     Dates: start: 20200408

REACTIONS (22)
  - Anxiety [Unknown]
  - Thrombosis [Unknown]
  - Sinus congestion [Unknown]
  - Photophobia [Unknown]
  - Depression [Unknown]
  - Decreased appetite [Unknown]
  - Pulmonary embolism [Unknown]
  - Rash [Unknown]
  - Cataract [Unknown]
  - Dry throat [Unknown]
  - Limb discomfort [Unknown]
  - Myalgia [Unknown]
  - Nausea [Unknown]
  - Panic attack [Unknown]
  - Diarrhoea [Unknown]
  - Vision blurred [Unknown]
  - Panic reaction [Unknown]
  - Eye disorder [Unknown]
  - Tachycardia [Unknown]
  - Hypertension [Unknown]
  - Vertigo [Unknown]
  - Headache [Unknown]
